FAERS Safety Report 9370149 (Version 1)
Quarter: 2013Q2

REPORT INFORMATION
  Report Type: Spontaneous
  Country: US (occurrence: None)
  Receive Date: 20130624
  Receipt Date: 20130624
  Transmission Date: 20140414
  Serious: Yes (Other)
  Sender: FDA-Public Use
  Company Number: 2013P1008842

PATIENT
  Age: 64 Year
  Sex: Female
  Weight: 88 kg

DRUGS (10)
  1. RIFAMPIN [Suspect]
     Indication: INFECTION PROPHYLAXIS
     Dosage: X2
     Route: 048
  2. PROPOFOL [Suspect]
     Indication: ANAESTHESIA
  3. ATORVASTATIN [Concomitant]
  4. ESOMEPRAZOLE [Concomitant]
  5. NAPROXEN [Concomitant]
  6. ACETAMINOPHEN PLUS HYDROCODONE [Concomitant]
  7. MULTIVITAMINS [Concomitant]
  8. MIDAZOLAM [Concomitant]
  9. FENTANYL [Concomitant]
  10. SUCCINYLCHOLINE [Concomitant]

REACTIONS (2)
  - Heart rate increased [None]
  - Hypotension [None]
